FAERS Safety Report 7939704-2 (Version None)
Quarter: 2011Q4

REPORT INFORMATION
  Report Type: 
  Country: None (occurrence: None)
  Receive Date: 20111125
  Receipt Date: 20111117
  Transmission Date: 20120403
  Serious: Yes (Hospitalization)
  Sender: FDA-Public Use
  Company Number: PHEH2011US05140

PATIENT
  Sex: Female

DRUGS (1)
  1. GILENYA [Suspect]
     Indication: MULTIPLE SCLEROSIS
     Dosage: 0.5 MG, DAILY
     Route: 048
     Dates: start: 20110606

REACTIONS (4)
  - CONVULSION [None]
  - PYREXIA [None]
  - NASOPHARYNGITIS [None]
  - VISUAL IMPAIRMENT [None]
